FAERS Safety Report 14768396 (Version 1)
Quarter: 2018Q2

REPORT INFORMATION
  Report Type: Spontaneous
  Country: US (occurrence: US)
  Receive Date: 20180417
  Receipt Date: 20180417
  Transmission Date: 20180711
  Serious: No
  Sender: FDA-Public Use
  Company Number: US-CORCEPT THERAPEUTICS INC.-US-2017CRT000421

PATIENT
  Sex: Female

DRUGS (2)
  1. KORLYM [Suspect]
     Active Substance: MIFEPRISTONE
     Indication: HYPERCORTICOIDISM
     Dosage: 300 MG, QD
     Route: 048
     Dates: start: 2017, end: 2017
  2. KORLYM [Suspect]
     Active Substance: MIFEPRISTONE
     Dosage: 600 MG, QD
     Route: 048
     Dates: start: 2017

REACTIONS (1)
  - Headache [Unknown]

NARRATIVE: CASE EVENT DATE: 2017
